FAERS Safety Report 16563100 (Version 4)
Quarter: 2020Q2

REPORT INFORMATION
  Report Type: Report from Study
  Country: JP (occurrence: JP)
  Receive Date: 20190711
  Receipt Date: 20200428
  Transmission Date: 20200713
  Serious: Yes (Hospitalization, Disabling, Other)
  Sender: FDA-Public Use
  Company Number: JP-BRISTOL-MYERS SQUIBB COMPANY-BMS-2019-062380

PATIENT
  Age: 65 Year
  Sex: Male
  Weight: 61 kg

DRUGS (3)
  1. IPILIMUMAB [Suspect]
     Active Substance: IPILIMUMAB
     Indication: MALIGNANT MELANOMA
     Dosage: 80 MILLIGRAM/KILOGRAM, Q3WK
     Route: 041
     Dates: start: 20181106, end: 20190129
  2. NIVOLUMAB [Suspect]
     Active Substance: NIVOLUMAB
     Indication: MALIGNANT MELANOMA
     Dosage: 80 MILLIGRAM, Q2WK
     Route: 041
     Dates: start: 20181106, end: 20190129
  3. NIVOLUMAB [Suspect]
     Active Substance: NIVOLUMAB
     Indication: PRODUCT USED FOR UNKNOWN INDICATION
     Dosage: 240 MILLIGRAM, Q2WK
     Route: 041
     Dates: start: 20180821, end: 20181018

REACTIONS (5)
  - Shock [Unknown]
  - Malignant neoplasm progression [Unknown]
  - Pancreatic enzymes increased [Unknown]
  - Leukoderma [Not Recovered/Not Resolved]
  - Colitis [Recovering/Resolving]

NARRATIVE: CASE EVENT DATE: 20190214
